FAERS Safety Report 5191220-X (Version None)
Quarter: 2006Q4

REPORT INFORMATION
  Report Type: 
  Country: None (occurrence: None)
  Receive Date: 20061218
  Receipt Date: 20061205
  Transmission Date: 20070319
  Serious: Yes (Hospitalization)
  Sender: FDA-Public Use
  Company Number: SPV1-2006-01041

PATIENT
  Age: 16 Year
  Sex: Male

DRUGS (2)
  1. PENTASA [Suspect]
     Indication: CROHN'S DISEASE
     Dosage: SEE IMAGE
     Dates: start: 20060407, end: 20060506
  2. PENTASA [Suspect]
     Indication: CROHN'S DISEASE
     Dosage: SEE IMAGE
     Dates: start: 20061201, end: 20061201

REACTIONS (2)
  - DIARRHOEA [None]
  - EOSINOPHILIC PNEUMONIA [None]
